FAERS Safety Report 7228546-1 (Version None)
Quarter: 2011Q1

REPORT INFORMATION
  Report Type: 
  Country: None (occurrence: None)
  Receive Date: 20110117
  Receipt Date: 20110107
  Transmission Date: 20110831
  Serious: Yes (Hospitalization)
  Sender: FDA-Public Use
  Company Number: US-BIOGENIDEC-2011BI001223

PATIENT
  Age: 59 Year
  Sex: Female
  Weight: 71 kg

DRUGS (16)
  1. ESTRADIOL [Concomitant]
     Indication: HORMONE REPLACEMENT THERAPY
     Route: 048
     Dates: start: 19950101
  2. KEPPRA [Concomitant]
     Indication: MUSCLE SPASTICITY
     Route: 048
     Dates: start: 19990101
  3. BOTOX [Concomitant]
     Indication: MUSCLE SPASTICITY
     Route: 030
     Dates: start: 20060101
  4. CENTRUM SILVER [Concomitant]
     Indication: ROUTINE HEALTH MAINTENANCE
     Route: 048
     Dates: start: 20000101
  5. ADVIL [Concomitant]
     Route: 048
     Dates: start: 20000101
  6. LEVOTHYROXINE SODIUM [Concomitant]
     Indication: HYPOTHYROIDISM
     Route: 048
     Dates: start: 20080601
  7. LYRICA [Concomitant]
     Indication: SENSORY DISTURBANCE
     Route: 048
     Dates: start: 20040101
  8. ADVIL [Concomitant]
     Indication: PAIN
     Route: 048
     Dates: start: 20000101
  9. KENALOG [Concomitant]
     Indication: ARTHRALGIA
     Route: 014
     Dates: start: 20060101
  10. TIZANIDINE HCL [Concomitant]
     Indication: MUSCLE SPASTICITY
     Route: 048
     Dates: start: 20020101
  11. TYSABRI [Suspect]
     Indication: MULTIPLE SCLEROSIS
     Route: 042
     Dates: start: 20070306
  12. BACLOFEN [Concomitant]
     Indication: MUSCLE SPASTICITY
     Route: 048
     Dates: start: 20000101
  13. CALCIUM/VITAMIN D [Concomitant]
     Indication: ROUTINE HEALTH MAINTENANCE
     Route: 048
     Dates: start: 20000101
  14. CITALOPRAM [Concomitant]
     Indication: DEPRESSION
     Route: 048
     Dates: start: 20040101
  15. CENTRUM SILVER [Concomitant]
     Indication: MEDICAL DIET
     Route: 048
     Dates: start: 20000101
  16. SIMVASTATIN [Concomitant]
     Indication: HYPERCHOLESTEROLAEMIA
     Route: 048
     Dates: start: 20020101

REACTIONS (1)
  - JOINT INSTABILITY [None]
